FAERS Safety Report 13925653 (Version 3)
Quarter: 2017Q3

REPORT INFORMATION
  Report Type: Spontaneous
  Country: US (occurrence: US)
  Receive Date: 20170831
  Receipt Date: 20170912
  Transmission Date: 20171127
  Serious: Yes (Life-Threatening, Hospitalization, Other)
  Sender: FDA-Public Use
  Company Number: US-PFIZER INC-2017371256

PATIENT
  Age: 29 Year
  Sex: Female

DRUGS (2)
  1. EPINEPHRINE. [Suspect]
     Active Substance: EPINEPHRINE
     Dosage: 1 MG, UNK
  2. BENADRYL [Suspect]
     Active Substance: DIPHENHYDRAMINE HYDROCHLORIDE
     Dosage: 50 MG, UNK

REACTIONS (7)
  - Poisoning deliberate [Recovering/Resolving]
  - Myocardial ischaemia [Recovered/Resolved]
  - Suicide attempt [Unknown]
  - Toxicity to various agents [Recovering/Resolving]
  - Left ventricular dysfunction [Recovering/Resolving]
  - Pulmonary oedema [Recovered/Resolved]
  - Incorrect route of drug administration [Recovering/Resolving]
